FAERS Safety Report 13862669 (Version 3)
Quarter: 2017Q3

REPORT INFORMATION
  Report Type: Spontaneous
  Country: JP (occurrence: JP)
  Receive Date: 20170814
  Receipt Date: 20170915
  Transmission Date: 20171127
  Serious: Yes (Death, Hospitalization, Other)
  Sender: FDA-Public Use
  Company Number: JP-009507513-1708JPN001080J

PATIENT
  Age: 78 Year
  Sex: Male

DRUGS (1)
  1. KEYTRUDA [Suspect]
     Active Substance: PEMBROLIZUMAB
     Indication: LUNG NEOPLASM MALIGNANT
     Dosage: 200 MG, Q3W
     Route: 041
     Dates: start: 20170713, end: 20170803

REACTIONS (4)
  - Platelet count decreased [Fatal]
  - Embolic stroke [Fatal]
  - Insomnia [Unknown]
  - Pyrexia [Fatal]

NARRATIVE: CASE EVENT DATE: 20170802
